FAERS Safety Report 4858797-2 (Version None)
Quarter: 2005Q4

REPORT INFORMATION
  Report Type: 
  Country: None (occurrence: None)
  Receive Date: 20051219
  Receipt Date: 20051101
  Transmission Date: 20060501
  Serious: No
  Sender: FDA-Public Use
  Company Number: US-GLAXOSMITHKLINE-A0580446A

PATIENT
  Age: 44 Year
  Sex: Male

DRUGS (1)
  1. EQUATE NTS 21MG [Suspect]
     Dates: start: 20051023

REACTIONS (4)
  - BODY TEMPERATURE INCREASED [None]
  - HOT FLUSH [None]
  - NIGHTMARE [None]
  - PALLOR [None]
